FAERS Safety Report 11116633 (Version 2)
Quarter: 2015Q3

REPORT INFORMATION
  Report Type: Spontaneous
  Country: US (occurrence: US)
  Receive Date: 20150515
  Receipt Date: 20150717
  Transmission Date: 20151125
  Serious: Yes (Other)
  Sender: FDA-Public Use
  Company Number: US-TEVA-562407ACC

PATIENT
  Age: 21 Year
  Sex: Female
  Weight: 53.57 kg

DRUGS (1)
  1. PARAGARD T 380A [Suspect]
     Active Substance: COPPER
     Indication: CONTRACEPTION
     Route: 015
     Dates: start: 20150213, end: 20150406

REACTIONS (4)
  - Uterine cervical pain [Unknown]
  - Pelvic inflammatory disease [Recovered/Resolved]
  - Device expulsion [Recovered/Resolved]
  - Pelvic pain [Unknown]

NARRATIVE: CASE EVENT DATE: 20150406
